FAERS Safety Report 8993068 (Version 1)
Quarter: 2013Q1

REPORT INFORMATION
  Report Type: Report from Study
  Country: TR (occurrence: TR)
  Receive Date: 20130102
  Receipt Date: 20130102
  Transmission Date: 20140127
  Serious: Yes (Death, Other)
  Sender: FDA-Public Use
  Company Number: TR-PFIZER INC-TR-WYE-H09843509

PATIENT
  Age: 46 Year
  Sex: Male
  Weight: 71 kg

DRUGS (19)
  1. RAPAMUNE [Suspect]
     Indication: PROPHYLAXIS AGAINST TRANSPLANT REJECTION
     Dosage: 1 MG, 1X/DAY
     Route: 048
     Dates: start: 20030615
  2. METHYLPREDNISOLONE ACETATE [Suspect]
     Indication: PROPHYLAXIS AGAINST TRANSPLANT REJECTION
     Dosage: 40 MG, 1X/DAY
     Route: 042
     Dates: start: 20030616, end: 20030623
  3. METHYLPREDNISOLONE ACETATE [Suspect]
     Dosage: 8 MG, 1X/DAY
     Route: 048
     Dates: start: 20030624
  4. DACLIZUMAB [Suspect]
     Indication: PROPHYLAXIS AGAINST TRANSPLANT REJECTION
     Dosage: 125 MG, SINGLE
     Route: 042
     Dates: start: 20030615, end: 20030615
  5. DACLIZUMAB [Suspect]
     Dosage: 50 MG, 1X/2 WEEK
     Route: 042
     Dates: start: 20030630, end: 20030727
  6. DACLIZUMAB [Suspect]
     Dosage: 66 MG, 1X/2 WEEK
     Route: 042
     Dates: start: 20030728
  7. DACLIZUMAB [Suspect]
     Dosage: 68 MG, ONE PER 2 WEEKS
     Route: 042
     Dates: start: 20030811
  8. MYCOPHENOLATE MOFETIL [Suspect]
     Indication: PROPHYLAXIS AGAINST TRANSPLANT REJECTION
     Dosage: 500 MG, 4X/DAY
     Route: 048
     Dates: start: 20030615
  9. MYCOPHENOLATE MOFETIL [Suspect]
     Dosage: 1 MG, 2X/DAY
     Route: 048
     Dates: start: 20030624, end: 20040505
  10. METHYLPREDNISOLONE [Suspect]
     Indication: PROPHYLAXIS AGAINST TRANSPLANT REJECTION
     Dosage: 8 MG, 1X/DAY
     Route: 048
     Dates: start: 20030624
  11. ACICLOVIR [Concomitant]
     Dosage: 800 MG, 3X/DAY
     Route: 048
     Dates: start: 20030716
  12. CIPROFLOXACIN [Concomitant]
     Dosage: 750 MG, 2X/DAY
     Route: 048
     Dates: start: 20040227
  13. ETHAMBUTOL [Concomitant]
     Dosage: 500 MG, 2X/DAY
     Route: 048
     Dates: start: 20040219
  14. ISONIAZID [Concomitant]
     Dosage: 300 MG, 1X/DAY
     Route: 048
     Dates: start: 20040219, end: 20040227
  15. LISINOPRIL [Concomitant]
     Dosage: UNK
     Route: 065
     Dates: start: 20030703
  16. PRAVASTATIN SODIUM [Concomitant]
     Dosage: UNK
     Route: 065
     Dates: start: 20030716
  17. PYRAZINAMIDE [Concomitant]
     Dosage: 500 MG, 3X/DAY
     Route: 048
     Dates: start: 20040219
  18. RIFAMPICIN [Concomitant]
     Dosage: 600 MG, 1X/DAY
     Route: 048
     Dates: start: 20040219, end: 20040227
  19. SULFAMETHOXAZOLE W/TRIMETHOPRIM [Concomitant]
     Dosage: 160 MG, UNK
     Route: 065
     Dates: start: 20030623

REACTIONS (1)
  - Small cell lung cancer [Fatal]
